FAERS Safety Report 10173929 (Version 1)
Quarter: 2014Q2

REPORT INFORMATION
  Report Type: Spontaneous
  Country: US (occurrence: None)
  Receive Date: 20140514
  Receipt Date: 20140514
  Transmission Date: 20141212
  Serious: No
  Sender: FDA-Public Use
  Company Number: None

PATIENT
  Age: 70 Year
  Sex: Female
  Weight: 58.97 kg

DRUGS (1)
  1. PROLIA [Suspect]
     Indication: OSTEOPOROSIS PROPHYLAXIS
     Dosage: ONE SHOT TWICE A YEAR  IN THE ARM
     Dates: start: 20130205

REACTIONS (3)
  - Muscle spasms [None]
  - Jaw disorder [None]
  - Trismus [None]
